FAERS Safety Report 5995262-3 (Version None)
Quarter: 2008Q4

REPORT INFORMATION
  Report Type: 
  Country: None (occurrence: None)
  Receive Date: 20081212
  Receipt Date: 20080922
  Transmission Date: 20090506
  Serious: No
  Sender: FDA-Public Use
  Company Number: US-ABBOTT-08P-163-0477694-00

PATIENT
  Sex: Female
  Weight: 99.88 kg

DRUGS (23)
  1. HUMIRA [Suspect]
     Indication: CROHN'S DISEASE
     Route: 050
     Dates: start: 20080501
  2. INSULIN DETEMIR [Concomitant]
     Indication: DIABETES MELLITUS
     Route: 050
  3. NOVALOG PEN [Concomitant]
     Indication: DIABETES MELLITUS
     Route: 050
  4. TERCONAZOLE [Concomitant]
     Indication: INFECTION
     Route: 061
  5. CONJUGATED ESTROGENS [Concomitant]
     Indication: DRUG USE FOR UNKNOWN INDICATION
     Route: 061
  6. ALBUTEROL SULFATE [Concomitant]
     Indication: RESPIRATORY DISORDER
     Route: 055
  7. METOPROLOL [Concomitant]
     Indication: CARDIOVASCULAR EVENT PROPHYLAXIS
     Route: 048
  8. ENTOCORTE [Concomitant]
     Indication: CROHN'S DISEASE
     Route: 048
  9. HYDROCORDONE APAP 10/750 [Concomitant]
     Indication: PAIN
     Route: 048
  10. TOPIRAMATE [Concomitant]
     Indication: TRANSIENT ISCHAEMIC ATTACK
     Route: 048
  11. TOPIRAMATE [Concomitant]
     Indication: CEREBROVASCULAR ACCIDENT
  12. AMLODIPINE MALEATE [Concomitant]
     Indication: BLOOD PRESSURE
     Route: 048
  13. AZATHIOPRINE [Concomitant]
     Indication: CROHN'S DISEASE
     Route: 048
  14. ESOMEPRAZOLE MAGNESIUM [Concomitant]
     Indication: PROPHYLAXIS AGAINST GASTROINTESTINAL ULCER
     Route: 048
  15. GENUVIA [Concomitant]
     Indication: DIABETES MELLITUS
     Route: 048
  16. PREGABALIN [Concomitant]
     Indication: PAIN
     Route: 048
  17. NYSTATIN [Concomitant]
     Indication: INFECTION
     Route: 061
  18. FISH OIL [Concomitant]
     Indication: MEDICAL DIET
     Route: 048
  19. TOCOPHERYL ACETATE [Concomitant]
     Indication: MEDICAL DIET
     Route: 048
  20. PHENERGAN HCL [Concomitant]
     Indication: NAUSEA
     Route: 048
  21. NICOTINAM. W/PYRIDOXI. HCL/RIBOFL./THIAM. HCL [Concomitant]
     Indication: MEDICAL DIET
     Route: 048
  22. HYDROXYZINE [Concomitant]
     Indication: PRURITUS
     Route: 048
  23. DONNATAL [Concomitant]
     Indication: CROHN'S DISEASE
     Route: 048

REACTIONS (3)
  - INJECTION SITE NODULE [None]
  - THERAPY REGIMEN CHANGED [None]
  - UNDERDOSE [None]
